FAERS Safety Report 9621519 (Version 1)
Quarter: 2013Q4

REPORT INFORMATION
  Report Type: Spontaneous
  Country: CA (occurrence: CA)
  Receive Date: 20131015
  Receipt Date: 20131015
  Transmission Date: 20140711
  Serious: Yes (Other)
  Sender: FDA-Public Use
  Company Number: CA-MYLANLABS-2013S1022283

PATIENT
  Age: 58 Year
  Sex: Male

DRUGS (6)
  1. RITUXIMAB [Suspect]
     Indication: LYMPHOMA
     Dosage: SIX 21-DAY CYCLES PLANNED
     Route: 065
  2. CYCLOPHOSPHAMIDE [Suspect]
     Indication: LYMPHOMA
     Dosage: SIX 21-DAY CYCLES PLANNED
     Route: 065
  3. DOXORUBICIN [Suspect]
     Indication: LYMPHOMA
     Dosage: SIX 21-DAY CYCLES PLANNED
     Route: 065
  4. VINCRISTINE [Suspect]
     Indication: LYMPHOMA
     Dosage: SIX 21-DAY CYCLES PLANNED
     Route: 065
  5. PREDNISOLONE [Suspect]
     Indication: LYMPHOMA
     Dosage: SIX 21-DAY CYCLES PLANNED
     Route: 065
  6. CLOZAPINE [Concomitant]
     Indication: SCHIZOPHRENIA, PARANOID TYPE
     Dosage: 500MG IN DIVIDED DOSES
     Route: 065
     Dates: start: 1998

REACTIONS (2)
  - White blood cell count decreased [Recovering/Resolving]
  - Neutrophil count decreased [Recovering/Resolving]
